FAERS Safety Report 9167314 (Version 2)
Quarter: 2013Q1

REPORT INFORMATION
  Report Type: Spontaneous
  Country: FR (occurrence: FR)
  Receive Date: 20130318
  Receipt Date: 20130322
  Transmission Date: 20140127
  Serious: Yes (Hospitalization)
  Sender: FDA-Public Use
  Company Number: FR-AMGEN-FRASP2013018314

PATIENT
  Age: 58 Year
  Sex: Male

DRUGS (2)
  1. ENBREL [Suspect]
     Indication: ANKYLOSING SPONDYLITIS
     Dosage: 50 MG, UNK
     Dates: start: 201212
  2. PLAVIX [Concomitant]
     Dosage: UNK

REACTIONS (3)
  - Pyrexia [Unknown]
  - Rash papular [Unknown]
  - Leukocytoclastic vasculitis [Unknown]
